FAERS Safety Report 17224757 (Version 1)
Quarter: 2020Q1

REPORT INFORMATION
  Report Type: Spontaneous
  Country: NO (occurrence: NO)
  Receive Date: 20200102
  Receipt Date: 20200102
  Transmission Date: 20200409
  Serious: Yes (Life-Threatening, Hospitalization, Other)
  Sender: FDA-Public Use
  Company Number: NO-MYLANLABS-2019M1109265

PATIENT
  Age: 6 Decade
  Sex: Female

DRUGS (10)
  1. FLECAINIDE [Suspect]
     Active Substance: FLECAINIDE
     Indication: PROPHYLAXIS
     Dosage: 4-5 G
  2. OXAZEPAM. [Suspect]
     Active Substance: OXAZEPAM
     Indication: PRODUCT USED FOR UNKNOWN INDICATION
     Dosage: 0.3 G
  3. EPINEPHRINE. [Suspect]
     Active Substance: EPINEPHRINE
     Indication: PRODUCT USED FOR UNKNOWN INDICATION
     Dosage: UNK
  4. METOCLOPRAMIDE. [Suspect]
     Active Substance: METOCLOPRAMIDE
     Indication: NAUSEA
     Dosage: UNK
  5. FLECAINIDE [Suspect]
     Active Substance: FLECAINIDE
     Dosage: UNK
  6. NORADRENALINE                      /00127501/ [Suspect]
     Active Substance: NOREPINEPHRINE
     Indication: HYPOTENSION
     Dosage: UNK
     Route: 065
  7. MECLIZINE                          /00072802/ [Suspect]
     Active Substance: MECLIZINE HYDROCHLORIDE
     Indication: PRODUCT USED FOR UNKNOWN INDICATION
     Dosage: 0.5 G
  8. ONDANSETRON [Suspect]
     Active Substance: ONDANSETRON
     Indication: NAUSEA
     Dosage: UNK
  9. RAMIPRIL. [Concomitant]
     Active Substance: RAMIPRIL
     Indication: HYPERTENSION
     Dosage: UNK
     Route: 065
  10. PIPERACILLIN + TAZOBACTAM EBERTH [Concomitant]
     Active Substance: PIPERACILLIN SODIUM\TAZOBACTAM SODIUM
     Indication: PNEUMONIA ASPIRATION
     Dosage: UNK

REACTIONS (32)
  - Pleural effusion [Unknown]
  - C-reactive protein increased [Unknown]
  - Cardiac failure [Unknown]
  - Electrocardiogram QRS complex prolonged [Recovered/Resolved]
  - Circulatory collapse [Recovered/Resolved]
  - Pyrexia [Unknown]
  - Toxicity to various agents [Recovered/Resolved]
  - Bradycardia [Recovered/Resolved]
  - Hypotension [Recovered/Resolved]
  - Intentional overdose [Unknown]
  - Unresponsive to stimuli [Unknown]
  - Sputum discoloured [Unknown]
  - Atrial fibrillation [Recovered/Resolved]
  - Electrocardiogram T wave inversion [Recovered/Resolved]
  - Pulmonary oedema [Recovered/Resolved]
  - Pneumonia aspiration [Unknown]
  - Torsade de pointes [Recovered/Resolved]
  - Dyspnoea [Unknown]
  - Left ventricular dysfunction [Unknown]
  - Oedema [Unknown]
  - Drug ineffective [Unknown]
  - Ventricular tachycardia [Recovered/Resolved]
  - Blood pressure decreased [Unknown]
  - Sinus bradycardia [Recovered/Resolved]
  - Ventricular extrasystoles [Unknown]
  - Nausea [Unknown]
  - Suicide attempt [Recovered/Resolved]
  - Overdose [Recovered/Resolved]
  - Electrocardiogram QT prolonged [Recovered/Resolved]
  - Stress cardiomyopathy [Recovered/Resolved]
  - Depressed level of consciousness [Recovered/Resolved]
  - Somnolence [Recovered/Resolved]
